FAERS Safety Report 5449764-9 (Version None)
Quarter: 2007Q3

REPORT INFORMATION
  Report Type: 
  Country: None (occurrence: None)
  Receive Date: 20070910
  Receipt Date: 20070910
  Transmission Date: 20080115
  Serious: Yes (Hospitalization)
  Sender: FDA-Public Use
  Company Number: None

PATIENT
  Age: 68 Year
  Sex: Male
  Weight: 99 kg

DRUGS (12)
  1. VELCADE [Suspect]
     Indication: MULTIPLE MYELOMA
     Dosage: 1.3MG/M2 WEEKLY FOR 4
     Dates: start: 20070612, end: 20070828
  2. CCI-779(TEMSIROLIMUS) [Suspect]
     Indication: MULTIPLE MYELOMA
     Dosage: 15MG/M2 WEEKLY
     Dates: start: 20070612, end: 20070828
  3. ATORVASTATIN CALCIUM [Concomitant]
  4. ENOXAPARIN SODIUM [Concomitant]
  5. OXYCODONE HCL [Concomitant]
  6. ACETAMINOPHEN AND OXYCODONE HCL [Concomitant]
  7. PREDNISONE [Concomitant]
  8. VALACYCLOVIR [Concomitant]
  9. ONDANSETRON HCL [Concomitant]
  10. METOPROMETOPROLOL TARTRATE [Concomitant]
  11. ZOLPIDETARTRATE VARIABLE [Concomitant]
  12. ACETAMINOPHEN [Concomitant]

REACTIONS (3)
  - HAEMATOMA [None]
  - HAEMOGLOBIN DECREASED [None]
  - THROMBOCYTOPENIA [None]
